FAERS Safety Report 15410726 (Version 1)
Quarter: 2018Q4

REPORT INFORMATION
  Report Type: Spontaneous
  Country: DK (occurrence: DK)
  Receive Date: 20180921
  Receipt Date: 20180921
  Transmission Date: 20190204
  Serious: Yes (Hospitalization)
  Sender: FDA-Public Use
  Company Number: DK-TEVA-2018-DK-957161

PATIENT
  Age: 62 Year
  Sex: Female

DRUGS (2)
  1. RIMACTAN [Suspect]
     Active Substance: RIFAMPIN
     Indication: WOUND INFECTION STAPHYLOCOCCAL
     Dosage: 1200 MILLIGRAM DAILY; STYRKE: 300 MG
     Route: 048
     Dates: start: 20180801, end: 20180814
  2. MOXIVA [Suspect]
     Active Substance: MOXIFLOXACIN
     Indication: WOUND INFECTION STAPHYLOCOCCAL
     Dosage: STYRKE: 400 MG
     Route: 048
     Dates: start: 20180725, end: 20180814

REACTIONS (5)
  - Nausea [Recovered/Resolved]
  - Parosmia [Unknown]
  - Vomiting [Recovered/Resolved]
  - Dysgeusia [Unknown]
  - Sensory disturbance [Unknown]

NARRATIVE: CASE EVENT DATE: 20180801
